FAERS Safety Report 8292837 (Version 2)
Quarter: 2014Q3

REPORT INFORMATION
  Report Type: Spontaneous
  Country: US (occurrence: US)
  Receive Date: 20111215
  Receipt Date: 20140709
  Transmission Date: 20150326
  Serious: Yes (Death, Hospitalization)
  Sender: FDA-Public Use
  Company Number: US-GLAXOSMITHKLINE-A0875918A

PATIENT
  Sex: Male

DRUGS (1)
  1. AVANDIA [Suspect]
     Active Substance: ROSIGLITAZONE MALEATE
     Indication: DIABETES MELLITUS
     Dosage: 4MG PER DAY
     Route: 048
     Dates: start: 20070403, end: 20070412

REACTIONS (3)
  - Cardiac disorder [Fatal]
  - Cardio-respiratory arrest [Fatal]
  - Angina pectoris [Unknown]
